FAERS Safety Report 9915647 (Version 1)
Quarter: 2014Q1

REPORT INFORMATION
  Report Type: Spontaneous
  Country: DE (occurrence: DE)
  Receive Date: 20140221
  Receipt Date: 20140221
  Transmission Date: 20141002
  Serious: Yes (Other)
  Sender: FDA-Public Use
  Company Number: DE-ROCHE-1351295

PATIENT
  Sex: Female

DRUGS (1)
  1. MABTHERA [Suspect]
     Indication: THROMBOTIC THROMBOCYTOPENIC PURPURA
     Dosage: FREQUENCY : 7 CYCLES.
     Route: 065
     Dates: start: 2009

REACTIONS (2)
  - Interstitial lung disease [Recovered/Resolved]
  - Off label use [Unknown]
